FAERS Safety Report 8329864-6 (Version None)
Quarter: 2012Q2

REPORT INFORMATION
  Report Type: 
  Country: None (occurrence: None)
  Receive Date: 20120502
  Receipt Date: 20120424
  Transmission Date: 20120825
  Serious: Yes (Death, Hospitalization)
  Sender: FDA-Public Use
  Company Number: JP-ROCHE-1050435

PATIENT
  Sex: Male

DRUGS (8)
  1. WARFARIN SODIUM [Concomitant]
  2. AMLODIPINE [Concomitant]
  3. RANIBIZUMAB [Suspect]
     Route: 050
     Dates: start: 20120126
  4. RANIBIZUMAB [Suspect]
     Route: 050
     Dates: start: 20111215
  5. RANIBIZUMAB [Suspect]
     Indication: AGE-RELATED MACULAR DEGENERATION
     Route: 050
     Dates: start: 20111124
  6. LEVOFLOXACIN [Concomitant]
     Dates: start: 20111101, end: 20120101
  7. LANIRAPID [Concomitant]
  8. VITAMIN B12 [Concomitant]

REACTIONS (12)
  - ARTHRITIS [None]
  - JOINT SWELLING [None]
  - ARTHRALGIA [None]
  - CARDIAC FAILURE [None]
  - POLYARTHRITIS [None]
  - WHEEZING [None]
  - NAUSEA [None]
  - INAPPROPRIATE SCHEDULE OF DRUG ADMINISTRATION [None]
  - OXYGEN SATURATION DECREASED [None]
  - CHOKING SENSATION [None]
  - MUSCULOSKELETAL PAIN [None]
  - NECK PAIN [None]
